FAERS Safety Report 25890630 (Version 2)
Quarter: 2025Q4

REPORT INFORMATION
  Report Type: Spontaneous
  Country: US (occurrence: US)
  Receive Date: 20251007
  Receipt Date: 20251212
  Transmission Date: 20260117
  Serious: No
  Sender: BAYER HEALTHCARE PHARMACEUTICALS INC.
  Company Number: US-BAYER-2025A130541

PATIENT
  Age: 53 Year
  Sex: Female

DRUGS (1)
  1. MIRENA [Suspect]
     Active Substance: LEVONORGESTREL
     Dosage: 20?G/DAY
     Route: 015
     Dates: start: 202005

REACTIONS (8)
  - Device dislocation [Not Recovered/Not Resolved]
  - Abdominal pain lower [None]
  - Vaginal discharge [None]
  - Genital haemorrhage [Recovered/Resolved]
  - Device issue [None]
  - Uterine leiomyoma calcification [None]
  - Vulvovaginal candidiasis [None]
  - Bacterial vaginosis [None]

NARRATIVE: CASE EVENT DATE: 20250923
